FAERS Safety Report 5040447-6 (Version None)
Quarter: 2006Q2

REPORT INFORMATION
  Report Type: 
  Country: None (occurrence: None)
  Receive Date: 20060630
  Receipt Date: 20060622
  Transmission Date: 20061013
  Serious: Yes (Other)
  Sender: FDA-Public Use
  Company Number: US-JNJFOC-20060606275

PATIENT
  Sex: Female
  Weight: 65.77 kg

DRUGS (5)
  1. MOTRIN [Suspect]
     Indication: INTERVERTEBRAL DISC DISORDER
     Route: 048
  2. GLUCOTROL [Suspect]
  3. GLUCOTROL [Suspect]
     Indication: DIABETES MELLITUS
  4. STARLIX [Suspect]
     Indication: DIABETES MELLITUS
  5. ACTONEL [Concomitant]

REACTIONS (8)
  - DIABETES MELLITUS [None]
  - DYSPNOEA [None]
  - FEELING HOT [None]
  - FEELING JITTERY [None]
  - HERPES ZOSTER [None]
  - HYPERHIDROSIS [None]
  - NERVOUSNESS [None]
  - STRESS [None]
